FAERS Safety Report 13980932 (Version 1)
Quarter: 2017Q3

REPORT INFORMATION
  Report Type: Spontaneous
  Country: US (occurrence: None)
  Receive Date: 20170915
  Receipt Date: 20170915
  Transmission Date: 20171128
  Serious: Yes (Hospitalization)
  Sender: FDA-Public Use
  Company Number: None

PATIENT
  Age: 66 Year
  Sex: Male

DRUGS (10)
  1. WARFARIN [Suspect]
     Active Substance: WARFARIN
     Indication: ANTICOAGULANT THERAPY
     Route: 048
     Dates: start: 20170818
  2. AMLODIPINE [Concomitant]
     Active Substance: AMLODIPINE BESYLATE
  3. EFAVIRENZ [Concomitant]
     Active Substance: EFAVIRENZ
  4. SEVELAMER [Concomitant]
     Active Substance: SEVELAMER
  5. CARVEDILOL. [Concomitant]
     Active Substance: CARVEDILOL
  6. LAMIVUDINE. [Concomitant]
     Active Substance: LAMIVUDINE
  7. VITAMIN B12 [Concomitant]
     Active Substance: CYANOCOBALAMIN
  8. GLIPIZIDE. [Concomitant]
     Active Substance: GLIPIZIDE
  9. TENOFOVIR [Concomitant]
     Active Substance: TENOFOVIR
  10. ASPIRIN. [Concomitant]
     Active Substance: ASPIRIN

REACTIONS (6)
  - Diarrhoea [None]
  - Chest pain [None]
  - International normalised ratio increased [None]
  - Oedema [None]
  - Dyspnoea [None]
  - Haemoglobin decreased [None]

NARRATIVE: CASE EVENT DATE: 20170818
